FAERS Safety Report 16017932 (Version 4)
Quarter: 2020Q1

REPORT INFORMATION
  Report Type: Spontaneous
  Country: US (occurrence: US)
  Receive Date: 20190228
  Receipt Date: 20200129
  Transmission Date: 20200409
  Serious: Yes (Death, Hospitalization)
  Sender: FDA-Public Use
  Company Number: US-PARI RESPIRATORY EQUIPMENT, INC.-2019PAR00014

PATIENT
  Age: 30 Year
  Sex: Female
  Weight: 27.21 kg

DRUGS (31)
  1. KITABIS PAK [Suspect]
     Active Substance: TOBRAMYCIN
     Indication: HYPOGAMMAGLOBULINAEMIA
  2. ACETAMINOPHEN. [Concomitant]
     Active Substance: ACETAMINOPHEN
  3. DIPHENHYDRAMINE. [Concomitant]
     Active Substance: DIPHENHYDRAMINE
  4. PULMOZYME [Concomitant]
     Active Substance: DORNASE ALFA
  5. DILAUDID [Concomitant]
     Active Substance: HYDROMORPHONE HYDROCHLORIDE
  6. REGLAN [Concomitant]
     Active Substance: METOCLOPRAMIDE HYDROCHLORIDE
  7. KITABIS PAK [Suspect]
     Active Substance: TOBRAMYCIN
     Indication: LUNG DISORDER
     Dosage: 300 MG, 2X/DAY FOR 28 DAYS ON, THE 28 DAYS OFF
     Dates: start: 2016
  8. PATANASE [Concomitant]
     Active Substance: OLOPATADINE HYDROCHLORIDE
  9. KEPPRA [Concomitant]
     Active Substance: LEVETIRACETAM
  10. ESCITALOPRAM OXALATE. [Concomitant]
     Active Substance: ESCITALOPRAM OXALATE
  11. SODIUM CHLORIDE. [Concomitant]
     Active Substance: SODIUM CHLORIDE
  12. COUMADIN [Concomitant]
     Active Substance: WARFARIN SODIUM
  13. OSMOLITE 1.2 CAL [Concomitant]
  14. EPINEPHRINE AUTO-INJECTOR [Concomitant]
     Active Substance: EPINEPHRINE
  15. XOPENEX [Concomitant]
     Active Substance: LEVALBUTEROL HYDROCHLORIDE
  16. CAYSTON [Concomitant]
     Active Substance: AZTREONAM
  17. INFED [Concomitant]
     Active Substance: IRON DEXTRAN
  18. OXYGEN. [Concomitant]
     Active Substance: OXYGEN
  19. ATENOLOL. [Concomitant]
     Active Substance: ATENOLOL
  20. KITABIS PAK [Suspect]
     Active Substance: TOBRAMYCIN
     Indication: LUNG DISORDER
  21. TOBRAMYCIN. [Concomitant]
     Active Substance: TOBRAMYCIN
  22. TOPAMAX [Concomitant]
     Active Substance: TOPIRAMATE
  23. FENTANYL. [Concomitant]
     Active Substance: FENTANYL
     Dosage: 75 ?G/HR PATCH, EVERY 72 HOURS
     Route: 062
  24. XOLAIR [Concomitant]
     Active Substance: OMALIZUMAB
  25. KITABIS PAK [Suspect]
     Active Substance: TOBRAMYCIN
     Indication: SCOLIOSIS
  26. HEPARIN [Concomitant]
     Active Substance: HEPARIN SODIUM
  27. NORMAL SALINE [Concomitant]
     Active Substance: SODIUM CHLORIDE
  28. GAMUNEX [Concomitant]
     Active Substance: HUMAN IMMUNOGLOBULIN G
  29. PULMICORT TURBUHALER [Concomitant]
     Active Substance: BUDESONIDE
  30. SCOPOLAMINE [Concomitant]
     Active Substance: SCOPOLAMINE
  31. DIAZEPAM. [Concomitant]
     Active Substance: DIAZEPAM

REACTIONS (6)
  - Death [Fatal]
  - Heart rate increased [Unknown]
  - Off label use [Unknown]
  - Pneumonia aspiration [Recovered/Resolved]
  - Hypertension [Unknown]
  - Pulmonary oedema [Recovering/Resolving]

NARRATIVE: CASE EVENT DATE: 2016
